FAERS Safety Report 8806698 (Version 1)
Quarter: 2012Q4

REPORT INFORMATION
  Report Type: 
  Country: US (occurrence: US)
  Receive Date: 20120925
  Receipt Date: 20120925
  Transmission Date: 20130627
  Serious: Yes (Hospitalization, Other)
  Sender: FDA-Public Use
  Company Number: PHEH2012US018365

PATIENT
  Sex: Female

DRUGS (6)
  1. EXELON PATCH [Suspect]
  2. BRACAKMILL [Concomitant]
  3. OMEPRAZOLE [Concomitant]
  4. CIPROFLOXACIN [Concomitant]
  5. FLECAINIDE ACETATE [Concomitant]
  6. OXYCODONE [Concomitant]

REACTIONS (7)
  - Food poisoning [Unknown]
  - Gastric disorder [Unknown]
  - Fall [Unknown]
  - Dizziness [Unknown]
  - Cerebral hypoperfusion [Unknown]
  - Dry skin [Unknown]
  - Diarrhoea [Unknown]
